FAERS Safety Report 7009139-8 (Version None)
Quarter: 2010Q3

REPORT INFORMATION
  Report Type: 
  Country: None (occurrence: None)
  Receive Date: 20100921
  Receipt Date: 20100914
  Transmission Date: 20110219
  Serious: Yes (Death, Life-Threatening, Other)
  Sender: FDA-Public Use
  Company Number: 2010SP044326

PATIENT
  Age: 23 Year
  Sex: Male
  Weight: 95.2554 kg

DRUGS (14)
  1. SAPHRIS [Suspect]
     Indication: ASPERGER'S DISORDER
     Dosage: 15 MG;QD;SL ; 10 MG;BID;SL
     Route: 060
     Dates: start: 20100813, end: 20100813
  2. SAPHRIS [Suspect]
     Indication: OBSESSIVE-COMPULSIVE DISORDER
     Dosage: 15 MG;QD;SL ; 10 MG;BID;SL
     Route: 060
     Dates: start: 20100813, end: 20100813
  3. SAPHRIS [Suspect]
     Indication: PARANOIA
     Dosage: 15 MG;QD;SL ; 10 MG;BID;SL
     Route: 060
     Dates: start: 20100813, end: 20100813
  4. SAPHRIS [Suspect]
     Indication: SCHIZOTYPAL PERSONALITY DISORDER
     Dosage: 15 MG;QD;SL ; 10 MG;BID;SL
     Route: 060
     Dates: start: 20100813, end: 20100813
  5. SAPHRIS [Suspect]
     Indication: SOCIAL PHOBIA
     Dosage: 15 MG;QD;SL ; 10 MG;BID;SL
     Route: 060
     Dates: start: 20100813, end: 20100813
  6. SAPHRIS [Suspect]
     Indication: ASPERGER'S DISORDER
     Dosage: 15 MG;QD;SL ; 10 MG;BID;SL
     Route: 060
     Dates: start: 20100524
  7. SAPHRIS [Suspect]
     Indication: OBSESSIVE-COMPULSIVE DISORDER
     Dosage: 15 MG;QD;SL ; 10 MG;BID;SL
     Route: 060
     Dates: start: 20100524
  8. SAPHRIS [Suspect]
     Indication: PARANOIA
     Dosage: 15 MG;QD;SL ; 10 MG;BID;SL
     Route: 060
     Dates: start: 20100524
  9. SAPHRIS [Suspect]
     Indication: SCHIZOTYPAL PERSONALITY DISORDER
     Dosage: 15 MG;QD;SL ; 10 MG;BID;SL
     Route: 060
     Dates: start: 20100524
  10. SAPHRIS [Suspect]
     Indication: SOCIAL PHOBIA
     Dosage: 15 MG;QD;SL ; 10 MG;BID;SL
     Route: 060
     Dates: start: 20100524
  11. GEODON [Concomitant]
  12. KLONOPIN [Concomitant]
  13. CELEXA [Concomitant]
  14. MULTI-VITAMIN [Concomitant]

REACTIONS (2)
  - FALL [None]
  - HEAD INJURY [None]
